APPROVED DRUG PRODUCT: PYQUVI
Active Ingredient: DEFLAZACORT
Strength: 22.75MG/ML
Dosage Form/Route: SUSPENSION;ORAL
Application: A219417 | Product #001 | TE Code: AB
Applicant: AUCTA PHARMACEUTICALS INC
Approved: Jun 30, 2025 | RLD: No | RS: No | Type: RX